FAERS Safety Report 7652575-7 (Version None)
Quarter: 2011Q3

REPORT INFORMATION
  Report Type: 
  Country: None (occurrence: None)
  Receive Date: 20110728
  Receipt Date: 20110722
  Transmission Date: 20111222
  Serious: Yes (Other)
  Sender: FDA-Public Use
  Company Number: ACO_24883_2011

PATIENT
  Age: 55 Year
  Sex: Female

DRUGS (2)
  1. AMPYRA [Suspect]
     Indication: GAIT DISTURBANCE
     Dosage: 10 MG, BID, ORAL; 10 MG, BID, ORAL
     Route: 048
     Dates: start: 20100101
  2. AMPYRA [Suspect]
     Indication: GAIT DISTURBANCE
     Dosage: 10 MG, BID, ORAL; 10 MG, BID, ORAL
     Route: 048
     Dates: start: 20100601, end: 20100101

REACTIONS (1)
  - ARTHROPATHY [None]
